FAERS Safety Report 7606264-5 (Version None)
Quarter: 2011Q3

REPORT INFORMATION
  Report Type: 
  Country: None (occurrence: None)
  Receive Date: 20110713
  Receipt Date: 20110706
  Transmission Date: 20111222
  Serious: Yes (Hospitalization)
  Sender: FDA-Public Use
  Company Number: US-BAYER-2011-043789

PATIENT
  Age: 30 Year
  Sex: Female

DRUGS (1)
  1. MIRENA [Suspect]
     Indication: CONTRACEPTION
     Dosage: UNK
     Dates: start: 20110511, end: 20110513

REACTIONS (5)
  - PELVIC DISCOMFORT [None]
  - ANORECTAL DISCOMFORT [None]
  - DEVICE DISLOCATION [None]
  - ABDOMINAL DISCOMFORT [None]
  - UTERINE PERFORATION [None]
